FAERS Safety Report 5684675-5 (Version None)
Quarter: 2008Q1

REPORT INFORMATION
  Report Type: 
  Country: None (occurrence: None)
  Receive Date: 20080328
  Receipt Date: 20070530
  Transmission Date: 20080703
  Serious: Yes (Life-Threatening)
  Sender: FDA-Public Use
  Company Number: US-BRISTOL-MYERS SQUIBB COMPANY-13799523

PATIENT

DRUGS (1)
  1. ERBITUX [Suspect]
     Indication: NEOPLASM MALIGNANT
     Route: 042

REACTIONS (2)
  - INFUSION RELATED REACTION [None]
  - TYPE IV HYPERSENSITIVITY REACTION [None]
